FAERS Safety Report 25971655 (Version 1)
Quarter: 2025Q4

REPORT INFORMATION
  Report Type: Spontaneous
  Country: US (occurrence: US)
  Receive Date: 20251029
  Receipt Date: 20251029
  Transmission Date: 20260118
  Serious: Yes (Hospitalization)
  Sender: Haleon PLC
  Company Number: US-HALEON-2269742

PATIENT
  Age: 21 Year
  Sex: Male

DRUGS (1)
  1. ADVIL [Suspect]
     Active Substance: IBUPROFEN
     Indication: Product used for unknown indication
     Dosage: TIME INTERVAL: TOTAL: 50 - TABLETS (TAB)

REACTIONS (3)
  - Tachycardia [Unknown]
  - Overdose [Unknown]
  - Hypertension [Unknown]
